FAERS Safety Report 12001539 (Version 2)
Quarter: 2016Q1

REPORT INFORMATION
  Report Type: Other
  Country: IT (occurrence: IT)
  Receive Date: 20160204
  Receipt Date: 20160325
  Transmission Date: 20160526
  Serious: Yes (Hospitalization)
  Sender: FDA-Public Use
  Company Number: IT-DEP_13562_2016

PATIENT
  Sex: Male

DRUGS (2)
  1. PECFENT [Suspect]
     Active Substance: FENTANYL CITRATE
     Indication: CANCER PAIN
     Dosage: 400 MCG/ 4 BOTTLES, UNK
     Route: 045
  2. METHADONE [Concomitant]
     Active Substance: METHADONE HYDROCHLORIDE
     Dosage: DF

REACTIONS (3)
  - Condition aggravated [Unknown]
  - Drug abuse [Unknown]
  - Device malfunction [Unknown]
